FAERS Safety Report 17396060 (Version 1)
Quarter: 2020Q1

REPORT INFORMATION
  Report Type: Spontaneous
  Country: US (occurrence: US)
  Receive Date: 20200207
  Receipt Date: 20200207
  Transmission Date: 20200409
  Serious: Yes (Disabling)
  Sender: FDA-Public Use
  Company Number: None

PATIENT
  Age: 64 Year
  Sex: Male
  Weight: 111.6 kg

DRUGS (4)
  1. METFORMIN [Concomitant]
     Active Substance: METFORMIN HYDROCHLORIDE
  2. CIPROFLOXACIN HCI 500 MG TAB BAYE [Suspect]
     Active Substance: CIPROFLOXACIN HYDROCHLORIDE
     Indication: URETEROSCOPY
     Dosage: ?          QUANTITY:1 TABLET(S);?
     Route: 048
     Dates: start: 20200131, end: 20200205
  3. LISINOPRIL. [Concomitant]
     Active Substance: LISINOPRIL
  4. IBUPROFIN [Concomitant]
     Active Substance: IBUPROFEN

REACTIONS (4)
  - Amnesia [None]
  - Cognitive disorder [None]
  - Impaired driving ability [None]
  - Reading disorder [None]

NARRATIVE: CASE EVENT DATE: 20200205
